FAERS Safety Report 14270569 (Version 1)
Quarter: 2017Q4

REPORT INFORMATION
  Report Type: Spontaneous
  Country: JP (occurrence: JP)
  Receive Date: 20171211
  Receipt Date: 20171211
  Transmission Date: 20180321
  Serious: Yes (Hospitalization, Other)
  Sender: FDA-Public Use
  Company Number: JP-OTSUKA-2016_007998

PATIENT
  Age: 39 Year
  Sex: Male

DRUGS (9)
  1. ABILIFY [Suspect]
     Active Substance: ARIPIPRAZOLE
     Indication: BIPOLAR DISORDER
     Dosage: 2 DF, QD
     Route: 048
     Dates: start: 20140904, end: 20141120
  2. HIRNAMIN [Concomitant]
     Active Substance: PHENOTHIAZINE
     Indication: PRODUCT USED FOR UNKNOWN INDICATION
     Dosage: 5 TABLETS, QD
     Route: 048
     Dates: start: 20150303
  3. ABILIFY [Suspect]
     Active Substance: ARIPIPRAZOLE
     Dosage: 1 DF, QD
     Route: 048
     Dates: start: 20141120, end: 20150312
  4. ABILIFY [Suspect]
     Active Substance: ARIPIPRAZOLE
     Indication: PRODUCT USED FOR UNKNOWN INDICATION
     Dosage: UNK
     Route: 065
  5. ABILIFY [Suspect]
     Active Substance: ARIPIPRAZOLE
     Indication: BIPOLAR DISORDER
     Dosage: 1 TABLET, QD
     Route: 048
     Dates: start: 20151126
  6. ABILIFY [Suspect]
     Active Substance: ARIPIPRAZOLE
     Dosage: 2 TABLETS, QD
     Route: 048
     Dates: start: 20150312, end: 20151126
  7. LEVOMEPROMAZINE [Concomitant]
     Active Substance: LEVOMEPROMAZINE
     Indication: PRODUCT USED FOR UNKNOWN INDICATION
     Dosage: 5 TAB, QD
     Route: 048
     Dates: start: 20150303
  8. BENZALIN [Concomitant]
     Active Substance: NITRAZEPAM
     Indication: PRODUCT USED FOR UNKNOWN INDICATION
     Dosage: 2 TABLETS, QD
     Route: 048
     Dates: start: 20150303
  9. VEGETAMIN A [Concomitant]
     Active Substance: CHLORPROMAZINE HYDROCHLORIDE\PHENOBARBITAL\PROMETHAZINE
     Indication: PRODUCT USED FOR UNKNOWN INDICATION
     Dosage: 1 TABLET, QD
     Route: 048
     Dates: start: 20150303

REACTIONS (3)
  - Ketosis [Not Recovered/Not Resolved]
  - Intentional self-injury [Unknown]
  - Hyperglycaemia [Not Recovered/Not Resolved]

NARRATIVE: CASE EVENT DATE: 20150724
